FAERS Safety Report 7361971-7 (Version None)
Quarter: 2011Q1

REPORT INFORMATION
  Report Type: 
  Country: None (occurrence: None)
  Receive Date: 20110315
  Receipt Date: 20110315
  Transmission Date: 20110831
  Serious: Yes (Life-Threatening)
  Sender: FDA-Public Use
  Company Number: None

PATIENT
  Age: 55 Year
  Sex: Male
  Weight: 74.8435 kg

DRUGS (1)
  1. ABACAVIR [Suspect]
     Indication: HIV INFECTION
     Dates: start: 20030701, end: 20070401

REACTIONS (5)
  - CARDIOMYOPATHY [None]
  - FATIGUE [None]
  - HYPERHIDROSIS [None]
  - DYSPNOEA [None]
  - WHEEZING [None]
